FAERS Safety Report 8165363-2 (Version None)
Quarter: 2012Q1

REPORT INFORMATION
  Report Type: 
  Country: None (occurrence: None)
  Receive Date: 20120227
  Receipt Date: 20110920
  Transmission Date: 20120608
  Serious: No
  Sender: FDA-Public Use
  Company Number: US-MYLANLABS-2011S1019871

PATIENT
  Age: 79 Year
  Sex: Male

DRUGS (2)
  1. METFORMIN HCL [Suspect]
     Indication: DIABETES MELLITUS
     Route: 048
     Dates: start: 20110101
  2. METFORMIN HCL [Suspect]
     Route: 048
     Dates: start: 20110101

REACTIONS (1)
  - DIARRHOEA [None]
